FAERS Safety Report 6814142-4 (Version None)
Quarter: 2010Q3

REPORT INFORMATION
  Report Type: 
  Country: None (occurrence: None)
  Receive Date: 20100702
  Receipt Date: 20100401
  Transmission Date: 20110219
  Serious: No
  Sender: FDA-Public Use
  Company Number: A0851617A

PATIENT
  Age: 64 Year
  Sex: Male

DRUGS (4)
  1. ADVAIR DISKUS 100/50 [Suspect]
     Indication: CHRONIC OBSTRUCTIVE PULMONARY DISEASE
     Dosage: 230MCG TWICE PER DAY
     Route: 055
     Dates: start: 20091201, end: 20100322
  2. AMLODIPINE [Concomitant]
  3. XANAX [Concomitant]
  4. ADVAIR DISKUS 100/50 [Concomitant]
     Route: 055
     Dates: start: 20100324

REACTIONS (3)
  - ABDOMINAL DISCOMFORT [None]
  - FEELING JITTERY [None]
  - MUSCULOSKELETAL PAIN [None]
